FAERS Safety Report 5465040-2 (Version None)
Quarter: 2007Q3

REPORT INFORMATION
  Report Type: 
  Country: None (occurrence: None)
  Receive Date: 20070820
  Receipt Date: 20070427
  Transmission Date: 20080115
  Serious: No
  Sender: FDA-Public Use
  Company Number: TPA2007A00923

PATIENT
  Age: 52 Year
  Sex: Female
  Weight: 70.3075 kg

DRUGS (3)
  1. ROZEREM [Suspect]
     Indication: INSOMNIA
     Dosage: 8 MG, QHS, PER ORAL
     Route: 048
     Dates: start: 20070425
  2. THYROID TAB [Concomitant]
  3. PHENTERMINE [Concomitant]

REACTIONS (1)
  - INITIAL INSOMNIA [None]
